FAERS Safety Report 13757559 (Version 1)
Quarter: 2017Q3

REPORT INFORMATION
  Report Type: Report from Study
  Country: None (occurrence: DE)
  Receive Date: 20170717
  Receipt Date: 20170717
  Transmission Date: 20171127
  Serious: Yes (Death, Hospitalization)
  Sender: FDA-Public Use
  Company Number: DE-ABBVIE-17P-062-1923107-00

PATIENT
  Sex: Male

DRUGS (13)
  1. CYMBALTA [Concomitant]
     Active Substance: DULOXETINE HYDROCHLORIDE
     Indication: PRODUCT USED FOR UNKNOWN INDICATION
  2. DUODOPA [Suspect]
     Active Substance: CARBIDOPA\LEVODOPA
     Dosage: MD 9 ML; CRD 4.6 ML/ H; ED 3 ML
     Route: 050
     Dates: start: 2017
  3. L-THYROXIN [Concomitant]
     Active Substance: LEVOTHYROXINE SODIUM
     Indication: PRODUCT USED FOR UNKNOWN INDICATION
  4. DEKRISTOL [Concomitant]
     Active Substance: CHOLECALCIFEROL
     Indication: PRODUCT USED FOR UNKNOWN INDICATION
  5. FRESUBIN [Concomitant]
     Active Substance: AMINO ACIDS\DEXTROSE\ELECTROLYTES NOS\SOYBEAN OIL\VITAMINS
     Indication: PRODUCT USED FOR UNKNOWN INDICATION
  6. ESCITALOPRAM ABC [Concomitant]
     Indication: PRODUCT USED FOR UNKNOWN INDICATION
  7. SCOPODERM [Concomitant]
     Active Substance: SCOPOLAMINE
     Indication: PRODUCT USED FOR UNKNOWN INDICATION
  8. EXELON [Concomitant]
     Active Substance: RIVASTIGMINE TARTRATE
     Indication: PRODUCT USED FOR UNKNOWN INDICATION
  9. TAVOR (LORAZEPAM) [Concomitant]
     Active Substance: LORAZEPAM
     Indication: PRODUCT USED FOR UNKNOWN INDICATION
  10. DUODOPA [Suspect]
     Active Substance: CARBIDOPA\LEVODOPA
     Indication: PARKINSON^S DISEASE
     Route: 050
     Dates: start: 20170116, end: 2017
  11. DUODOPA [Suspect]
     Active Substance: CARBIDOPA\LEVODOPA
     Dosage: MD 8 ML CRD 2,8 ML/H  ED 1 ML
     Route: 050
     Dates: start: 2017, end: 2017
  12. QUETIAPIN [Concomitant]
     Active Substance: QUETIAPINE
     Indication: PRODUCT USED FOR UNKNOWN INDICATION
  13. NOVAMIN (PROCHLORPERAZINE) [Concomitant]
     Active Substance: PROCHLORPERAZINE
     Indication: PRODUCT USED FOR UNKNOWN INDICATION

REACTIONS (7)
  - Musculoskeletal stiffness [Not Recovered/Not Resolved]
  - Psychotic disorder [Unknown]
  - Saliva altered [Not Recovered/Not Resolved]
  - Dysphagia [Not Recovered/Not Resolved]
  - General physical health deterioration [Fatal]
  - Fatigue [Not Recovered/Not Resolved]
  - Apathy [Not Recovered/Not Resolved]

NARRATIVE: CASE EVENT DATE: 2017
